FAERS Safety Report 7431031-5 (Version None)
Quarter: 2011Q2

REPORT INFORMATION
  Report Type: 
  Country: None (occurrence: None)
  Receive Date: 20110421
  Receipt Date: 20110404
  Transmission Date: 20111010
  Serious: No
  Sender: FDA-Public Use
  Company Number: US-B.I. PHARMACEUTICALS,INC./RIDGEFIELD-2011-BP-05304BP

PATIENT
  Sex: Male

DRUGS (5)
  1. SOTALOL HCL [Suspect]
     Indication: ATRIAL FIBRILLATION
  2. BYSTOLIC [Concomitant]
     Indication: HYPERTENSION
     Dates: start: 20110208
  3. PRADAXA [Suspect]
     Indication: ATRIAL FIBRILLATION
     Dosage: 300 MG
     Route: 048
     Dates: start: 20110108, end: 20110218
  4. FLECAINIDE ACETATE [Suspect]
     Indication: ATRIAL FIBRILLATION
     Dates: start: 20110211
  5. CRESTOR [Concomitant]
     Indication: BLOOD CHOLESTEROL INCREASED

REACTIONS (7)
  - ERUCTATION [None]
  - ABDOMINAL DISTENSION [None]
  - DIZZINESS [None]
  - CHEST PAIN [None]
  - CHEST DISCOMFORT [None]
  - DYSPEPSIA [None]
  - FLATULENCE [None]
